FAERS Safety Report 5843694-6 (Version None)
Quarter: 2008Q3

REPORT INFORMATION
  Report Type: 
  Country: None (occurrence: None)
  Receive Date: 20080731
  Receipt Date: 20080602
  Transmission Date: 20090109
  Serious: No
  Sender: FDA-Public Use
  Company Number: US200804007540

PATIENT
  Age: 59 Year
  Sex: Female

DRUGS (10)
  1. BYETTA [Suspect]
     Indication: TYPE 2 DIABETES MELLITUS
     Dosage: 5 UG, 2/D, SUBCUTANEOUS; 10 UG, 2/D, SUBCUTANEOUS
     Route: 058
     Dates: start: 20080304, end: 20080324
  2. BYETTA [Suspect]
     Indication: TYPE 2 DIABETES MELLITUS
     Dosage: 5 UG, 2/D, SUBCUTANEOUS; 10 UG, 2/D, SUBCUTANEOUS
     Route: 058
     Dates: start: 20080324, end: 20080503
  3. EXENATIDE 10MCG, PEN, DISPOSABLE DEVICE (EXENATIDE PEN (10MCG)) PEN,DI [Concomitant]
  4. GLIPIZIDE [Concomitant]
  5. PRAVASTATIN [Concomitant]
  6. DILTIAZEM [Concomitant]
  7. ASA (ASPIRIN (CETYLSALICYLIC ACID) UNKNOWN FORMULATION) [Concomitant]
  8. LORATADINE [Concomitant]
  9. RANITIDINE [Concomitant]
  10. VITAMIN D [Concomitant]

REACTIONS (4)
  - HAEMATOCHEZIA [None]
  - HAEMORRHOIDAL HAEMORRHAGE [None]
  - INJECTION SITE HAEMATOMA [None]
  - NAUSEA [None]
